FAERS Safety Report 13120633 (Version 2)
Quarter: 2017Q1

REPORT INFORMATION
  Report Type: Spontaneous
  Country: US (occurrence: US)
  Receive Date: 20170117
  Receipt Date: 20170222
  Transmission Date: 20170428
  Serious: No
  Sender: FDA-Public Use
  Company Number: US-PFIZER INC-2017018136

PATIENT
  Age: 56 Year
  Sex: Female
  Weight: 82 kg

DRUGS (3)
  1. PERCOCET [Concomitant]
     Active Substance: ACETAMINOPHEN\OXYCODONE HYDROCHLORIDE
     Indication: PAIN
     Dosage: UNK, AS NEEDED
  2. BACLOFEN. [Concomitant]
     Active Substance: BACLOFEN
     Indication: PAIN
     Dosage: 20 MG, 3X/DAY
  3. FLECTOR [Suspect]
     Active Substance: DICLOFENAC EPOLAMINE
     Indication: BACK PAIN
     Dosage: 1 DF, 2X/DAY
     Route: 062
     Dates: start: 201701

REACTIONS (2)
  - Drug ineffective [Unknown]
  - Product quality issue [Unknown]
